FAERS Safety Report 7388403-7 (Version None)
Quarter: 2011Q2

REPORT INFORMATION
  Report Type: 
  Country: None (occurrence: None)
  Receive Date: 20110401
  Receipt Date: 20110323
  Transmission Date: 20111010
  Serious: Yes (Other)
  Sender: FDA-Public Use
  Company Number: CH-US-EMD SERONO, INC.-7040954

PATIENT
  Sex: Female

DRUGS (5)
  1. REBIF [Suspect]
     Indication: MULTIPLE SCLEROSIS
     Route: 058
     Dates: start: 20050401
  2. DEPO CLINOVIR [Concomitant]
     Indication: CONTRACEPTION
     Dates: start: 20081001
  3. IBUBRUFEN [IBUPROFEN] [Concomitant]
     Indication: PROPHYLAXIS
     Route: 048
  4. INSULIN APIDRA [Concomitant]
     Indication: TYPE 1 DIABETES MELLITUS
     Route: 058
  5. LANTUS [Concomitant]
     Indication: TYPE 1 DIABETES MELLITUS
     Route: 058

REACTIONS (4)
  - GALACTORRHOEA [None]
  - AMENORRHOEA [None]
  - MENSTRUATION IRREGULAR [None]
  - PROLACTINOMA [None]
